FAERS Safety Report 9059547 (Version 1)
Quarter: 2013Q1

REPORT INFORMATION
  Report Type: Spontaneous
  Country: IN (occurrence: IN)
  Receive Date: 20130212
  Receipt Date: 20130212
  Transmission Date: 20140127
  Serious: Yes (Hospitalization)
  Sender: FDA-Public Use
  Company Number: IN-BIOGENIDEC-2013BI011761

PATIENT
  Sex: Male

DRUGS (1)
  1. AVONEX [Suspect]
     Indication: MULTIPLE SCLEROSIS
     Route: 030
     Dates: start: 2010, end: 201210

REACTIONS (3)
  - Abasia [Recovered/Resolved]
  - Multiple sclerosis relapse [Recovered/Resolved]
  - Pyrexia [Recovered/Resolved]
